FAERS Safety Report 4849119-1 (Version None)
Quarter: 2005Q4

REPORT INFORMATION
  Report Type: 
  Country: None (occurrence: None)
  Receive Date: 20051209
  Receipt Date: 20051201
  Transmission Date: 20060501
  Serious: Yes (Death, Other)
  Sender: FDA-Public Use
  Company Number: JP-JPN-A20052939

PATIENT
  Age: 68 Year
  Sex: Male
  Weight: 48 kg

DRUGS (3)
  1. ALKERAN [Suspect]
     Indication: MULTIPLE MYELOMA
     Route: 048
  2. PREDONINE [Concomitant]
     Indication: MULTIPLE MYELOMA
     Route: 048
  3. THALIDOMIDE [Concomitant]
     Indication: MULTIPLE MYELOMA
     Route: 065

REACTIONS (13)
  - ANAEMIA [None]
  - BLOOD LACTATE DEHYDROGENASE INCREASED [None]
  - BONE PAIN [None]
  - CARDIAC FAILURE CONGESTIVE [None]
  - CARDIAC MURMUR [None]
  - CONDITION AGGRAVATED [None]
  - DYSPNOEA [None]
  - ERYTHROBLAST COUNT INCREASED [None]
  - MALAISE [None]
  - METASTASIS [None]
  - MYELODYSPLASTIC SYNDROME [None]
  - PALLOR [None]
  - PLATELET COUNT DECREASED [None]
